FAERS Safety Report 5248425-9 (Version None)
Quarter: 2007Q1

REPORT INFORMATION
  Report Type: 
  Country: None (occurrence: None)
  Receive Date: 20070222
  Receipt Date: 20070213
  Transmission Date: 20070707
  Serious: Yes (Hospitalization)
  Sender: FDA-Public Use
  Company Number: APP200700010

PATIENT
  Age: 79 Year
  Sex: Male

DRUGS (8)
  1. FLUOROURACIL [Suspect]
     Indication: COLORECTAL CANCER METASTATIC
     Dosage: 50.2857 MG (704 MG, 1 IN 2 WK),  INTRAVENOUS
     Route: 042
     Dates: start: 20070116, end: 20070116
  2. CETUXIMAB (CETUXIMAB) [Suspect]
     Indication: COLORECTAL CANCER METASTATIC
     Dosage: 62.8571 MG (440 MG, 1 IN 1 WK), INTRAVENOUS
     Route: 042
     Dates: start: 20070123, end: 20070123
  3. BEVACIZUMAB (BEVACIZUMAB) [Suspect]
     Indication: COLORECTAL CANCER METASTATIC
     Dosage: 23.5714 MG (330 MG, 1 IN 2 WK), INTRAVENOUS
     Route: 042
     Dates: start: 20070116, end: 20070116
  4. LEUCOVORIN CALCIUM [Suspect]
     Indication: COLORECTAL CANCER METASTATIC
     Dosage: 50.2857 MG (704 MG, 1 IN 2 WK), INTRAVENOUS
     Route: 042
  5. MAXIPIME [Concomitant]
  6. TOPROL-XL [Concomitant]
  7. PROTONIX [Concomitant]
  8. LEVAQUIN [Concomitant]

REACTIONS (11)
  - BLOOD CALCIUM DECREASED [None]
  - BLOOD CHLORIDE INCREASED [None]
  - BLOOD PHOSPHORUS DECREASED [None]
  - BLOOD POTASSIUM DECREASED [None]
  - DECREASED APPETITE [None]
  - DEHYDRATION [None]
  - DIARRHOEA [None]
  - HAEMATOCRIT DECREASED [None]
  - HAEMOGLOBIN DECREASED [None]
  - NAUSEA [None]
  - PYREXIA [None]
